FAERS Safety Report 17696248 (Version 2)
Quarter: 2020Q4

REPORT INFORMATION
  Report Type: Report from Study
  Country: US (occurrence: US)
  Receive Date: 20200423
  Receipt Date: 20201105
  Transmission Date: 20210113
  Serious: No
  Sender: FDA-Public Use
  Company Number: US-SA-2020SA101186

PATIENT

DRUGS (1)
  1. DUPILUMAB [Suspect]
     Active Substance: DUPILUMAB
     Dosage: 300 MG, OTHER
     Route: 058
     Dates: start: 202004

REACTIONS (4)
  - COVID-19 [Unknown]
  - Unevaluable event [Unknown]
  - Condition aggravated [Unknown]
  - Contusion [Unknown]

NARRATIVE: CASE EVENT DATE: 2020
